FAERS Safety Report 5613310-7 (Version None)
Quarter: 2008Q1

REPORT INFORMATION
  Report Type: 
  Country: None (occurrence: None)
  Receive Date: 20080129
  Receipt Date: 20080117
  Transmission Date: 20080703
  Serious: Yes (Hospitalization)
  Sender: FDA-Public Use
  Company Number: 2008BI001433

PATIENT
  Age: 46 Year
  Sex: Female
  Weight: 50 kg

DRUGS (1)
  1. AVONEX [Suspect]
     Indication: MULTIPLE SCLEROSIS
     Dosage: 30 UG;QW;IM
     Route: 030
     Dates: start: 20040801

REACTIONS (13)
  - COGNITIVE DISORDER [None]
  - COORDINATION ABNORMAL [None]
  - DEPRESSION [None]
  - HYPERTENSION [None]
  - INCONTINENCE [None]
  - INFLUENZA LIKE ILLNESS [None]
  - MICTURITION URGENCY [None]
  - MUSCLE SPASTICITY [None]
  - PAIN IN EXTREMITY [None]
  - PARAESTHESIA [None]
  - SENSORY DISTURBANCE [None]
  - THROMBOCYTHAEMIA [None]
  - URINARY INCONTINENCE [None]
